FAERS Safety Report 14426987 (Version 1)
Quarter: 2018Q1

REPORT INFORMATION
  Report Type: Spontaneous
  Country: US (occurrence: US)
  Receive Date: 20180123
  Receipt Date: 20180123
  Transmission Date: 20180509
  Serious: No
  Sender: FDA-Public Use
  Company Number: US-ST. RENATUS-2017STR00052

PATIENT
  Sex: Male

DRUGS (2)
  1. KOVANAZE [Suspect]
     Active Substance: OXYMETAZOLINE HYDROCHLORIDE\TETRACAINE HYDROCHLORIDE
     Dosage: UNK
     Dates: start: 20170828, end: 20170828
  2. KOVANAZE [Suspect]
     Active Substance: OXYMETAZOLINE HYDROCHLORIDE\TETRACAINE HYDROCHLORIDE
     Dosage: UNK
     Dates: start: 20170828, end: 20170828

REACTIONS (3)
  - Intentional product misuse [Recovered/Resolved]
  - Rhinorrhoea [Recovered/Resolved]
  - Nasopharyngitis [Recovered/Resolved]

NARRATIVE: CASE EVENT DATE: 20170828
